FAERS Safety Report 4745404-2 (Version None)
Quarter: 2005Q3

REPORT INFORMATION
  Report Type: 
  Country: None (occurrence: None)
  Receive Date: 20050812
  Receipt Date: 20050224
  Transmission Date: 20060218
  Serious: Yes (Other)
  Sender: FDA-Public Use
  Company Number: PHEH2005US01174

PATIENT
  Age: 64 Year
  Sex: Female
  Weight: 59.8748 kg

DRUGS (5)
  1. VISUDYNE [Suspect]
     Indication: MACULAR DEGENERATION
     Dosage: 10.2 MG DAILY IV
     Route: 042
     Dates: start: 20041216, end: 20041216
  2. KENALOG [Suspect]
     Dates: start: 20041216, end: 20041216
  3. LOPID [Concomitant]
  4. ALTACE [Concomitant]
  5. CARDIZEM [Concomitant]

REACTIONS (1)
  - VISUAL ACUITY REDUCED [None]
